FAERS Safety Report 10912830 (Version 1)
Quarter: 2015Q1

REPORT INFORMATION
  Report Type: Spontaneous
  Country: PL (occurrence: None)
  Receive Date: 20150310
  Receipt Date: 20150310
  Transmission Date: 20150721
  Serious: Yes (Other)
  Sender: FDA-Public Use
  Company Number: 20150543

PATIENT
  Sex: Female

DRUGS (1)
  1. METEX (METHOTREXATE DISODIUM) [Suspect]
     Active Substance: METHOTREXATE SODIUM
     Indication: RHEUMATOID ARTHRITIS
     Dates: start: 2007

REACTIONS (2)
  - Macrocytosis [None]
  - Leukopenia [None]
